FAERS Safety Report 5403455-9 (Version None)
Quarter: 2007Q3

REPORT INFORMATION
  Report Type: 
  Country: None (occurrence: None)
  Receive Date: 20070713
  Receipt Date: 20060815
  Transmission Date: 20080115
  Serious: Yes (Other)
  Sender: FDA-Public Use
  Company Number: 459826

PATIENT
  Age: 49 Year
  Sex: Female
  Weight: 68 kg

DRUGS (3)
  1. BONIVA [Suspect]
     Indication: OSTEOPENIA
     Dosage: 1 PER MONTH, ORAL
     Route: 048
     Dates: start: 20060801, end: 20060803
  2. VICODIN [Concomitant]
  3. SYNTHROID [Concomitant]

REACTIONS (6)
  - BONE PAIN [None]
  - EYE IRRITATION [None]
  - FATIGUE [None]
  - FEELING ABNORMAL [None]
  - GAIT DISTURBANCE [None]
  - MYALGIA [None]
